FAERS Safety Report 5124057-8 (Version None)
Quarter: 2006Q4

REPORT INFORMATION
  Report Type: 
  Country: None (occurrence: None)
  Receive Date: 20061010
  Receipt Date: 20050915
  Transmission Date: 20070319
  Serious: No
  Sender: FDA-Public Use
  Company Number: US-BRISTOL-MYERS SQUIBB COMPANY-13111281

PATIENT
  Age: 62 Year
  Sex: Female
  Weight: 82 kg

DRUGS (3)
  1. AVAPRO [Suspect]
     Indication: HYPERTENSION
     Dosage: THERAPY FROM:  ^MANY YEARS AGO^
     Route: 048
  2. AMBIEN [Concomitant]
  3. OGEN [Concomitant]
     Indication: HORMONE REPLACEMENT THERAPY
     Dosage: DURATION OF THERAPY:  ^MANY YEARS^

REACTIONS (1)
  - DYSGEUSIA [None]
